FAERS Safety Report 4504544-3 (Version None)
Quarter: 2004Q4

REPORT INFORMATION
  Report Type: 
  Country: None (occurrence: None)
  Receive Date: 20041116
  Receipt Date: 20041104
  Transmission Date: 20050328
  Serious: Yes (Hospitalization, Other)
  Sender: FDA-Public Use
  Company Number: 2004089623

PATIENT
  Sex: Male
  Weight: 87.5442 kg

DRUGS (7)
  1. CELEBREX [Suspect]
     Indication: ARTHRALGIA
     Dosage: 200 MG (200 MG, QD INTERVAL:  EVERY
  2. VALSARTAN (VALSARTAN) [Concomitant]
  3. METOPROLOL SUCCINATE [Concomitant]
  4. LORAZEPAM [Concomitant]
  5. SIMVASTATIN [Concomitant]
  6. NYSTATIN [Concomitant]
  7. TRIAMCINOLONE [Concomitant]

REACTIONS (4)
  - CEREBROVASCULAR ACCIDENT [None]
  - MYOCARDIAL INFARCTION [None]
  - PROCEDURAL COMPLICATION [None]
  - VISION BLURRED [None]
